FAERS Safety Report 23230195 (Version 1)
Quarter: 2023Q4

REPORT INFORMATION
  Report Type: Spontaneous
  Country: US (occurrence: None)
  Receive Date: 20231122
  Receipt Date: 20231122
  Transmission Date: 20240109
  Serious: Yes (Hospitalization)
  Sender: FDA-Public Use
  Company Number: None

PATIENT
  Age: 58 Year
  Sex: Female

DRUGS (1)
  1. GLATIRAMER [Suspect]
     Active Substance: GLATIRAMER
     Indication: Multiple sclerosis
     Dosage: OTHER FREQUENCY : TIW;?
     Route: 058
     Dates: start: 20181016

REACTIONS (3)
  - Disease recurrence [None]
  - Multiple sclerosis [None]
  - Therapy interrupted [None]

NARRATIVE: CASE EVENT DATE: 20230804
